FAERS Safety Report 6626067-8 (Version None)
Quarter: 2010Q1

REPORT INFORMATION
  Report Type: 
  Country: None (occurrence: None)
  Receive Date: 20100310
  Receipt Date: 20100304
  Transmission Date: 20100710
  Serious: Yes (Hospitalization)
  Sender: FDA-Public Use
  Company Number: A0848368A

PATIENT
  Age: 6 Year
  Sex: Female

DRUGS (4)
  1. FLOVENT [Suspect]
     Indication: ASTHMA
     Dosage: 2PUFF TWICE PER DAY
     Route: 055
     Dates: start: 20090201
  2. ZYRTEC [Concomitant]
  3. SINGULAIR [Concomitant]
  4. PROAIR HFA [Concomitant]

REACTIONS (12)
  - ADRENAL SUPPRESSION [None]
  - ASTHMA [None]
  - BLOOD CORTICOTROPHIN DECREASED [None]
  - DRUG INEFFECTIVE [None]
  - FATIGUE [None]
  - HEADACHE [None]
  - HYPOTHALAMO-PITUITARY DISORDER [None]
  - MALAISE [None]
  - NAUSEA [None]
  - PAIN [None]
  - POOR QUALITY SLEEP [None]
  - WEIGHT DECREASED [None]
